APPROVED DRUG PRODUCT: NIX
Active Ingredient: PERMETHRIN
Strength: 1%
Dosage Form/Route: LOTION;TOPICAL
Application: N019918 | Product #001
Applicant: MEDTECH PRODUCTS INC
Approved: May 2, 1990 | RLD: Yes | RS: Yes | Type: OTC